FAERS Safety Report 21599470 (Version 1)
Quarter: 2022Q4

REPORT INFORMATION
  Report Type: Spontaneous
  Country: PT (occurrence: PT)
  Receive Date: 20221115
  Receipt Date: 20221115
  Transmission Date: 20230113
  Serious: Yes (Other)
  Sender: FDA-Public Use
  Company Number: PT-BBM-PT-BBM-202208594

PATIENT
  Age: 75 Year
  Sex: Male

DRUGS (2)
  1. GENTAMICIN [Suspect]
     Active Substance: GENTAMICIN
     Indication: Listeriosis
     Route: 065
  2. AMPICILLIN [Concomitant]
     Active Substance: AMPICILLIN
     Indication: Listeriosis
     Dosage: MONOTHERAPY

REACTIONS (2)
  - Condition aggravated [Unknown]
  - Chronic kidney disease [Unknown]
